FAERS Safety Report 22917955 (Version 7)
Quarter: 2025Q2

REPORT INFORMATION
  Report Type: Other
  Country: US (occurrence: US)
  Receive Date: 20230907
  Receipt Date: 20250502
  Transmission Date: 20250717
  Serious: Yes (Hospitalization, Other)
  Sender: TRAVERE THERAPEUTICS
  Company Number: US-TRAVERE-2023TVT00365

PATIENT
  Age: 43 Year
  Sex: Female

DRUGS (2)
  1. FILSPARI [Suspect]
     Active Substance: SPARSENTAN
     Indication: IgA nephropathy
     Dosage: 400 MG
     Route: 048
     Dates: start: 20230602
  2. TARPEYO [Concomitant]
     Active Substance: BUDESONIDE

REACTIONS (9)
  - Pneumonia [None]
  - Nephropathy [Unknown]
  - Disease progression [Unknown]
  - COVID-19 [Unknown]
  - Dehydration [Unknown]
  - Erythema [Recovered/Resolved]
  - Hot flush [Recovered/Resolved]
  - Flushing [Unknown]
  - Hypotension [Unknown]

NARRATIVE: CASE EVENT DATE: 20230724
